FAERS Safety Report 4418104-6 (Version None)
Quarter: 2004Q3

REPORT INFORMATION
  Report Type: 
  Country: None (occurrence: None)
  Receive Date: 20040806
  Receipt Date: 20040806
  Transmission Date: 20050211
  Serious: No
  Sender: FDA-Public Use
  Company Number: None

PATIENT
  Sex: Female

DRUGS (4)
  1. FOSAMAX [Suspect]
     Indication: OSTEOPENIA
     Dosage: WEEKLY
     Dates: start: 20020415, end: 20031020
  2. SYNTHROID [Concomitant]
  3. LIPITOR [Concomitant]
  4. SONATA [Concomitant]

REACTIONS (1)
  - SCLERITIS [None]
